FAERS Safety Report 8189153-X (Version None)
Quarter: 2012Q1

REPORT INFORMATION
  Report Type: 
  Country: None (occurrence: None)
  Receive Date: 20120306
  Receipt Date: 20120306
  Transmission Date: 20120608
  Serious: Yes (Other)
  Sender: FDA-Public Use
  Company Number: None

PATIENT
  Sex: Female
  Weight: 75.7507 kg

DRUGS (19)
  1. OXYGEN [Concomitant]
  2. HYDROCODONE BITARTRATE AND ACETAMINOPHEN [Concomitant]
  3. TESSALON [Concomitant]
  4. CLONAZEPAM [Concomitant]
  5. NOVOFINE [Concomitant]
  6. TOBRADEX [Concomitant]
  7. ALBITEROL SULFATE [Concomitant]
  8. VOLTAREN [Concomitant]
  9. CHANTIX [Suspect]
     Indication: SMOKING CESSATION THERAPY
     Dosage: 0.5 MG 1 TAB. X3 DAYS ORAL ; 1 MG 2 TABS X4 DAYS ORAL
     Route: 048
     Dates: start: 20120101, end: 20120107
  10. VISTARIL [Concomitant]
  11. GLUCOMETER, LANCETS AND STRIPS [Concomitant]
  12. VYTORIN [Concomitant]
  13. NASAREL [Concomitant]
  14. PROAIR HFA [Concomitant]
  15. MAXALT-MLT [Concomitant]
  16. ATROVENT [Concomitant]
  17. BACLOFEN [Concomitant]
  18. FLECTOR [Concomitant]
  19. PROMETHAZINE HCL [Concomitant]

REACTIONS (9)
  - ANGER [None]
  - SCREAMING [None]
  - FEELING ABNORMAL [None]
  - SUICIDAL IDEATION [None]
  - VERTIGO [None]
  - MUSCULOSKELETAL STIFFNESS [None]
  - PSYCHOTIC DISORDER [None]
  - FALL [None]
  - AGGRESSION [None]
